FAERS Safety Report 8974880 (Version 3)
Quarter: 2013Q1

REPORT INFORMATION
  Report Type: Spontaneous
  Country: US (occurrence: US)
  Receive Date: 20121219
  Receipt Date: 20130117
  Transmission Date: 20140127
  Serious: Yes (Other)
  Sender: FDA-Public Use
  Company Number: US-PFIZER INC-2012278580

PATIENT
  Age: 92 Year
  Sex: Female
  Weight: 61.22 kg

DRUGS (4)
  1. ZITHROMAX [Suspect]
     Indication: PNEUMONIA
     Dosage: 500 MG, DAILY ON AS NEEDED BASIS
     Dates: end: 20130105
  2. ZITHROMAX [Suspect]
     Indication: NASOPHARYNGITIS
  3. ZITHROMAX [Suspect]
     Indication: INFLUENZA
  4. ZITHROMAX [Suspect]
     Indication: PYREXIA

REACTIONS (6)
  - Hyperparathyroidism [Unknown]
  - Influenza [Recovered/Resolved]
  - Nasopharyngitis [Recovered/Resolved]
  - Pyrexia [Recovered/Resolved]
  - Blood calcium increased [Not Recovered/Not Resolved]
  - Off label use [Unknown]
